FAERS Safety Report 13890772 (Version 1)
Quarter: 2017Q3

REPORT INFORMATION
  Report Type: Spontaneous
  Country: US (occurrence: None)
  Receive Date: 20170816
  Receipt Date: 20170816
  Transmission Date: 20171127
  Serious: No
  Sender: FDA-Public Use
  Company Number: None

PATIENT

DRUGS (2)
  1. BACITRACIN BACITRACIN [Suspect]
     Active Substance: BACITRACIN
     Route: 030
  2. SOLU-MEDROL [Suspect]
     Active Substance: METHYLPREDNISOLONE SODIUM SUCCINATE
     Dosage: OTHER ROUTE:IM OR IV, MULTI DOSE VIAL?
     Route: 030

REACTIONS (2)
  - Product packaging issue [None]
  - Product label confusion [None]
